FAERS Safety Report 8474376-2 (Version None)
Quarter: 2012Q2

REPORT INFORMATION
  Report Type: 
  Country: None (occurrence: None)
  Receive Date: 20120628
  Receipt Date: 20120120
  Transmission Date: 20120825
  Serious: Yes (Death)
  Sender: FDA-Public Use
  Company Number: US-MYLANLABS-2011S1026234

PATIENT
  Age: 70 Year
  Sex: Female

DRUGS (11)
  1. HUMALOG [Concomitant]
  2. OMEPRAZOLE [Concomitant]
  3. ASCORBIC ACID [Concomitant]
  4. ZINC SULFATE [Concomitant]
  5. NYSTATIN [Concomitant]
  6. CLOZAPINE [Suspect]
     Route: 048
  7. CLOZAPINE [Suspect]
     Route: 048
  8. GLIPIZIDE [Concomitant]
  9. ATIVAN [Concomitant]
  10. MORPHINE [Concomitant]
  11. POLYETHYLENE GLYCOL [Concomitant]

REACTIONS (4)
  - NEOPLASM MALIGNANT [None]
  - FAILURE TO THRIVE [None]
  - RENAL FAILURE [None]
  - GASTROINTESTINAL HAEMORRHAGE [None]
